FAERS Safety Report 6632123-0 (Version None)
Quarter: 2010Q1

REPORT INFORMATION
  Report Type: 
  Country: None (occurrence: None)
  Receive Date: 20100310
  Receipt Date: 20100305
  Transmission Date: 20100710
  Serious: Yes (Other)
  Sender: FDA-Public Use
  Company Number: A0848624A

PATIENT
  Age: 70 Year
  Sex: Female

DRUGS (1)
  1. METHYLCELLULOSE CAPLET (METHYLCELLULOSE) [Suspect]
     Indication: DRUG USE FOR UNKNOWN INDICATION

REACTIONS (2)
  - OCULAR ICTERUS [None]
  - YELLOW SKIN [None]
